FAERS Safety Report 6575740-9 (Version None)
Quarter: 2010Q1

REPORT INFORMATION
  Report Type: 
  Country: None (occurrence: None)
  Receive Date: 20100209
  Receipt Date: 20100201
  Transmission Date: 20100710
  Serious: Yes (Other)
  Sender: FDA-Public Use
  Company Number: IT-JNJFOC-20100202512

PATIENT
  Age: 30 Year
  Sex: Male

DRUGS (1)
  1. RISPERDAL [Suspect]
     Indication: MEDICATION ERROR
     Route: 048

REACTIONS (5)
  - ANXIETY [None]
  - PALPITATIONS [None]
  - TACHYCARDIA [None]
  - VISUAL IMPAIRMENT [None]
  - WRONG DRUG ADMINISTERED [None]
